FAERS Safety Report 20076605 (Version 1)
Quarter: 2021Q4

REPORT INFORMATION
  Report Type: Spontaneous
  Country: US (occurrence: None)
  Receive Date: 20211115
  Receipt Date: 20211115
  Transmission Date: 20220304
  Serious: No
  Sender: FDA-Public Use
  Company Number: None

PATIENT
  Sex: Male

DRUGS (1)
  1. ADCIRCA [Suspect]
     Active Substance: TADALAFIL
     Indication: Pulmonary arterial hypertension
     Dosage: FREQUENCY : DAILY;?
     Route: 048
     Dates: start: 20211027

REACTIONS (6)
  - Feeling abnormal [None]
  - Memory impairment [None]
  - Memory impairment [None]
  - Hypoaesthesia [None]
  - Paraesthesia [None]
  - Peripheral swelling [None]
